FAERS Safety Report 6349499-4 (Version None)
Quarter: 2009Q3

REPORT INFORMATION
  Report Type: 
  Country: None (occurrence: None)
  Receive Date: 20090911
  Receipt Date: 20090824
  Transmission Date: 20100115
  Serious: Yes (Other)
  Sender: FDA-Public Use
  Company Number: JP-EISAI INC.-E2090-00839-SPO-JP

PATIENT
  Age: 72 Year
  Sex: Male

DRUGS (3)
  1. TRERIEF [Suspect]
     Indication: PARKINSON'S DISEASE
     Route: 048
     Dates: start: 20090501
  2. PRAMIPEXOLE DIHYDROCHLORIDE [Concomitant]
  3. ARTIST [Concomitant]

REACTIONS (1)
  - RENAL IMPAIRMENT [None]
